FAERS Safety Report 6370756-X (Version None)
Quarter: 2009Q3

REPORT INFORMATION
  Report Type: 
  Country: None (occurrence: None)
  Receive Date: 20090923
  Receipt Date: 20071129
  Transmission Date: 20100115
  Serious: Yes (Other)
  Sender: FDA-Public Use
  Company Number: US-ASTRAZENECA-2006UW25932

PATIENT
  Sex: Male
  Weight: 79.4 kg

DRUGS (4)
  1. SEROQUEL [Suspect]
     Dosage: 25-300 MG
     Route: 048
     Dates: start: 20030608
  2. SEROQUEL [Suspect]
     Route: 048
  3. ZYPREXA [Concomitant]
  4. AMBIEN [Concomitant]
     Dates: start: 20030509

REACTIONS (1)
  - PANCREATITIS [None]
